FAERS Safety Report 25274756 (Version 1)
Quarter: 2025Q2

REPORT INFORMATION
  Report Type: Report from Study
  Country: US (occurrence: US)
  Receive Date: 20250506
  Receipt Date: 20250506
  Transmission Date: 20250716
  Serious: Yes (Hospitalization)
  Sender: GILEAD
  Company Number: US-GILEAD-2025-0712406

PATIENT
  Age: 1 Year
  Sex: Female

DRUGS (2)
  1. AMBRISENTAN [Suspect]
     Active Substance: AMBRISENTAN
     Indication: Pulmonary arterial hypertension
     Dosage: 5MG DAILY VIA NG TUBE
     Route: 050
     Dates: start: 202501
  2. UPTRAVI [Suspect]
     Active Substance: SELEXIPAG
     Indication: Pulmonary arterial hypertension
     Dosage: 100MCG TWICE DAILY VIA NG TUBE
     Route: 050
     Dates: start: 202501

REACTIONS (7)
  - Dyspnoea [Unknown]
  - Respiratory rate increased [Unknown]
  - Pleural effusion [Unknown]
  - Cardiac disorder [Recovered/Resolved]
  - Mood altered [Unknown]
  - Irritability [Unknown]
  - Product use issue [Not Recovered/Not Resolved]
